FAERS Safety Report 7413514-7 (Version None)
Quarter: 2011Q2

REPORT INFORMATION
  Report Type: 
  Country: None (occurrence: None)
  Receive Date: 20110413
  Receipt Date: 20110411
  Transmission Date: 20111010
  Serious: Yes (Death, Hospitalization)
  Sender: FDA-Public Use
  Company Number: PHHY2011US30192

PATIENT
  Sex: Male
  Weight: 79.47 kg

DRUGS (11)
  1. ACETAMINOPHEN [Concomitant]
  2. LASIX [Concomitant]
  3. ASPIRIN [Concomitant]
  4. FIBER-LAX [Concomitant]
  5. EXJADE [Suspect]
     Indication: MYELOFIBROSIS
     Dosage: 1000 MG,DAILY
     Route: 048
     Dates: start: 20110309
  6. FLOMAX [Concomitant]
  7. AMBIEN [Concomitant]
  8. OMEPRAZOLE [Concomitant]
  9. BENADRYL [Concomitant]
  10. PREDNISONE [Concomitant]
  11. TIMOLOL [Concomitant]

REACTIONS (2)
  - DEATH [None]
  - ABASIA [None]
